FAERS Safety Report 8312582-8 (Version None)
Quarter: 2012Q2

REPORT INFORMATION
  Report Type: 
  Country: None (occurrence: None)
  Receive Date: 20120425
  Receipt Date: 20120425
  Transmission Date: 20120825
  Serious: Yes (Hospitalization)
  Sender: FDA-Public Use
  Company Number: None

PATIENT
  Age: 9 Year
  Sex: Male

DRUGS (3)
  1. CONCERTA [Concomitant]
  2. KAPVAY [Suspect]
     Indication: ATTENTION DEFICIT/HYPERACTIVITY DISORDER
     Dosage: KAPVAY 0.1 MG QHS
  3. CLONIDINE IR [Concomitant]

REACTIONS (3)
  - MIDDLE INSOMNIA [None]
  - HALLUCINATION, VISUAL [None]
  - SCREAMING [None]
